FAERS Safety Report 4713305-1 (Version None)
Quarter: 2005Q3

REPORT INFORMATION
  Report Type: 
  Country: None (occurrence: None)
  Receive Date: 20050713
  Receipt Date: 20050707
  Transmission Date: 20060218
  Serious: Yes (Hospitalization)
  Sender: FDA-Public Use
  Company Number: ESPFI-S-20050003

PATIENT
  Age: 59 Year
  Sex: Female

DRUGS (6)
  1. NAVELBINE [Suspect]
     Indication: BREAST CANCER
     Route: 042
     Dates: start: 20040518
  2. GEMCITABINE [Suspect]
     Indication: BREAST CANCER
     Dosage: 1776MG PER DAY
     Route: 042
     Dates: start: 20040518
  3. DEXAMETHASONE [Concomitant]
     Dates: start: 20040406
  4. OMEPRAZOLE [Concomitant]
     Dates: start: 20040406
  5. METOCLOPRAMIDE [Concomitant]
  6. ONDANSETRON [Concomitant]
     Dates: start: 20040525

REACTIONS (3)
  - FEBRILE NEUTROPENIA [None]
  - PNEUMONIA [None]
  - RESPIRATORY FAILURE [None]
